FAERS Safety Report 6728016-0 (Version None)
Quarter: 2010Q2

REPORT INFORMATION
  Report Type: 
  Country: None (occurrence: None)
  Receive Date: 20100512
  Receipt Date: 20100121
  Transmission Date: 20101027
  Serious: No
  Sender: FDA-Public Use
  Company Number: 1000010372

PATIENT
  Age: 55 Year
  Sex: Female

DRUGS (5)
  1. SAVELLA [Suspect]
     Indication: FIBROMYALGIA
     Dosage: 12.5 MG (12.5 MG, 1 IN 1 D), ORAL ; 25 MG (12.5 MG, 2 IN 1 D), ORAL
     Route: 048
     Dates: start: 20091110, end: 20091110
  2. SAVELLA [Suspect]
     Indication: FIBROMYALGIA
     Dosage: 12.5 MG (12.5 MG, 1 IN 1 D), ORAL ; 25 MG (12.5 MG, 2 IN 1 D), ORAL
     Route: 048
     Dates: start: 20091111, end: 20091113
  3. SAVELLA [Suspect]
     Indication: FIBROMYALGIA
     Dosage: 50 MG (25 MG, 1 IN 1 D), ORAL
     Route: 048
     Dates: start: 20091114, end: 20091115
  4. SAVELLA [Suspect]
     Indication: FIBROMYALGIA
     Dosage: 25 MG (12.5 MG, 1 IN 1 D), ORAL
     Route: 048
     Dates: start: 20091116, end: 20091123
  5. FOSAMAX [Concomitant]

REACTIONS (5)
  - CONSTIPATION [None]
  - DRY MOUTH [None]
  - HOT FLUSH [None]
  - IRRITABILITY [None]
  - OROPHARYNGEAL PAIN [None]
